FAERS Safety Report 4715889-6 (Version None)
Quarter: 2005Q3

REPORT INFORMATION
  Report Type: 
  Country: None (occurrence: None)
  Receive Date: 20050718
  Receipt Date: 20050706
  Transmission Date: 20060218
  Serious: Yes (Other)
  Sender: FDA-Public Use
  Company Number: IT-ROCHE-410164

PATIENT
  Age: 43 Year
  Sex: Female

DRUGS (5)
  1. FUZEON [Suspect]
     Indication: HIV INFECTION
     Dosage: FORM: VIAL.
     Route: 058
     Dates: start: 20050530, end: 20050530
  2. AMPRENAVIR [Concomitant]
     Dosage: DOSAGE REGIMEN: 150 MG.
     Route: 048
     Dates: start: 20041007, end: 20050529
  3. RITONAVIR [Concomitant]
     Route: 048
     Dates: start: 20041007, end: 20050529
  4. LAMIVUDINA [Concomitant]
     Dosage: DOSAGE REGIMEN: 300 MG.
     Route: 048
     Dates: start: 20041007, end: 20050529
  5. TENOFOVIR DISOPROXIL FUMARATE [Concomitant]
     Dosage: DOSAGE REGIMEN: 245 MG.
     Dates: start: 20041029, end: 20050507

REACTIONS (6)
  - ANAPHYLACTIC SHOCK [None]
  - BRONCHOSPASM [None]
  - DYSPNOEA [None]
  - HYPOXIA [None]
  - PYREXIA [None]
  - SYNCOPE [None]
